FAERS Safety Report 13618129 (Version 2)
Quarter: 2017Q2

REPORT INFORMATION
  Report Type: Spontaneous
  Country: DE (occurrence: DE)
  Receive Date: 20170606
  Receipt Date: 20170607
  Transmission Date: 20170830
  Serious: Yes (Other)
  Sender: FDA-Public Use
  Company Number: DE-TEVA-773501GER

PATIENT
  Age: 66 Year
  Sex: Male

DRUGS (17)
  1. ROHYPNOL [Suspect]
     Active Substance: FLUNITRAZEPAM
     Route: 048
     Dates: start: 20160730, end: 20160905
  2. ENALAPRIL [Concomitant]
     Active Substance: ENALAPRIL
     Route: 048
  3. OLANZAPIN [Suspect]
     Active Substance: OLANZAPINE
     Route: 048
     Dates: start: 20160719, end: 20160724
  4. PANTOZOL [Concomitant]
     Active Substance: PANTOPRAZOLE SODIUM
     Route: 048
  5. OLANZAPIN [Suspect]
     Active Substance: OLANZAPINE
     Route: 048
     Dates: start: 20160725, end: 20160726
  6. VIGANTOLETTEN [Concomitant]
     Active Substance: CHOLECALCIFEROL
     Route: 048
  7. MOVICOL [Concomitant]
     Active Substance: POLYETHYLENE GLYCOL 3350\POTASSIUM CHLORIDE\SODIUM BICARBONATE\SODIUM CHLORIDE
     Dosage: 2 BAGS
     Route: 048
     Dates: start: 20160423
  8. METFORMIN [Concomitant]
     Active Substance: METFORMIN HYDROCHLORIDE
     Route: 048
  9. ROHYPNOL [Suspect]
     Active Substance: FLUNITRAZEPAM
     Route: 048
     Dates: start: 20160906
  10. OLANZAPIN [Suspect]
     Active Substance: OLANZAPINE
     Route: 048
     Dates: start: 20160806, end: 20160809
  11. GLIMEPIRID [Concomitant]
     Active Substance: GLIMEPIRIDE
     Route: 048
  12. OLANZAPIN [Suspect]
     Active Substance: OLANZAPINE
     Route: 048
     Dates: start: 20160727, end: 20160805
  13. OLANZAPIN [Suspect]
     Active Substance: OLANZAPINE
     Route: 048
     Dates: start: 20160810
  14. QUILONUM RETARD [Suspect]
     Active Substance: LITHIUM CARBONATE
     Route: 048
  15. ROHYPNOL [Suspect]
     Active Substance: FLUNITRAZEPAM
     Route: 048
     Dates: start: 20160726, end: 20160728
  16. ROHYPNOL [Suspect]
     Active Substance: FLUNITRAZEPAM
     Route: 048
     Dates: start: 20160729, end: 20160729
  17. TAMSULOSIN [Concomitant]
     Active Substance: TAMSULOSIN
     Route: 048

REACTIONS (5)
  - Urinary incontinence [Recovered/Resolved]
  - Logorrhoea [Recovered/Resolved]
  - Disturbance in attention [Recovered/Resolved]
  - Anal incontinence [Recovered/Resolved]
  - Memory impairment [Recovered/Resolved]

NARRATIVE: CASE EVENT DATE: 20160805
